FAERS Safety Report 11487509 (Version 1)
Quarter: 2015Q3

REPORT INFORMATION
  Report Type: Spontaneous
  Country: US (occurrence: US)
  Receive Date: 20150910
  Receipt Date: 20150910
  Transmission Date: 20151125
  Serious: No
  Sender: FDA-Public Use
  Company Number: US-ROCHE-1237928

PATIENT
  Sex: Male

DRUGS (4)
  1. TRAMADOL. [Concomitant]
     Active Substance: TRAMADOL
  2. PEGASYS [Suspect]
     Active Substance: PEGINTERFERON ALFA-2A
     Indication: CHRONIC HEPATITIS C
     Route: 065
     Dates: start: 20130218
  3. KLONOPIN [Suspect]
     Active Substance: CLONAZEPAM
     Indication: PRODUCT USED FOR UNKNOWN INDICATION
     Route: 065
  4. COPEGUS [Suspect]
     Active Substance: RIBAVIRIN
     Indication: CHRONIC HEPATITIS C
     Dosage: DIVIDED DOSE
     Route: 065
     Dates: start: 20130218

REACTIONS (9)
  - Drug dose omission [Unknown]
  - Dehydration [Unknown]
  - Blister [Unknown]
  - Malaise [Unknown]
  - Rash [Unknown]
  - Lacrimation increased [Unknown]
  - Stress [Unknown]
  - Ear pain [Recovered/Resolved]
  - Skin fissures [Unknown]
